FAERS Safety Report 6141311-1 (Version None)
Quarter: 2009Q2

REPORT INFORMATION
  Report Type: 
  Country: None (occurrence: None)
  Receive Date: 20090401
  Receipt Date: 20090401
  Transmission Date: 20091009
  Serious: Yes (Hospitalization, Other)
  Sender: FDA-Public Use
  Company Number: None

PATIENT
  Age: 68 Year
  Sex: Male
  Weight: 83 kg

DRUGS (12)
  1. GEMCITABINE HCL [Suspect]
     Indication: NON-SMALL CELL LUNG CANCER METASTATIC
     Dosage: 200MG ONCE IV 1 DOSE
     Route: 042
     Dates: start: 20090122, end: 20090122
  2. GEMCITABINE HCL [Suspect]
     Dosage: 1500MG Q WEEK X2 WEEKS IV 2 DOSES
     Route: 042
     Dates: start: 20090205, end: 20090212
  3. NSCLC [Concomitant]
  4. VOLOCIXIMAB [Concomitant]
  5. BEVACIZUMAB [Concomitant]
  6. CARBOPLATIN [Concomitant]
  7. BEVACIZUMAB [Concomitant]
  8. CARBOPLATIN [Concomitant]
  9. PACLITAXEL [Concomitant]
  10. BEVACIZUMAB [Concomitant]
  11. VOLOCIXIMAB [Concomitant]
  12. PEMETREXED [Concomitant]

REACTIONS (4)
  - DYSPNOEA [None]
  - GANGRENE [None]
  - NECROSIS [None]
  - SYSTEMIC SCLEROSIS [None]
